FAERS Safety Report 25998281 (Version 1)
Quarter: 2025Q4

REPORT INFORMATION
  Report Type: Spontaneous
  Country: CA (occurrence: CA)
  Receive Date: 20251105
  Receipt Date: 20251105
  Transmission Date: 20260117
  Serious: Yes (Hospitalization)
  Sender: TEVA
  Company Number: CA-TEVA-VS-3388239

PATIENT
  Age: 77 Year
  Sex: Male

DRUGS (3)
  1. BENDAMUSTINE HYDROCHLORIDE [Suspect]
     Active Substance: BENDAMUSTINE HYDROCHLORIDE
     Indication: Follicular lymphoma
     Route: 065
  2. RITUXIMAB [Suspect]
     Active Substance: RITUXIMAB
     Indication: Follicular lymphoma
     Route: 065
  3. ROCEPHIN [Suspect]
     Active Substance: CEFTRIAXONE SODIUM
     Indication: Organising pneumonia
     Dosage: DOSE FORM: POWDER FOR SOLUTION INTRAMUSCULAR
     Route: 065

REACTIONS (3)
  - COVID-19 [Recovering/Resolving]
  - Organising pneumonia [Recovering/Resolving]
  - Off label use [Recovering/Resolving]
